FAERS Safety Report 16771148 (Version 2)
Quarter: 2019Q3

REPORT INFORMATION
  Report Type: Spontaneous
  Country: US (occurrence: US)
  Receive Date: 20190904
  Receipt Date: 20190904
  Transmission Date: 20191005
  Serious: Yes (Congenital Anomaly)
  Sender: FDA-Public Use
  Company Number: US-PFIZER INC-2019369562

PATIENT

DRUGS (1)
  1. PARACETAMOL [Suspect]
     Active Substance: ACETAMINOPHEN
     Indication: BACK PAIN
     Dosage: 1000 MG, DAILY (PROLONGED)
     Route: 064

REACTIONS (3)
  - Ductus arteriosus premature closure [Recovered/Resolved]
  - Ventricular hypertrophy [Unknown]
  - Maternal exposure during pregnancy [Unknown]
